FAERS Safety Report 4355890-8 (Version None)
Quarter: 2004Q2

REPORT INFORMATION
  Report Type: 
  Country: None (occurrence: None)
  Receive Date: 20040505
  Receipt Date: 20040422
  Transmission Date: 20050107
  Serious: Yes (Other)
  Sender: FDA-Public Use
  Company Number: 2004-BP-01191AU

PATIENT
  Age: 68 Year
  Sex: Male

DRUGS (1)
  1. MICARDIS [Suspect]
     Route: 048

REACTIONS (2)
  - CONFUSIONAL STATE [None]
  - DISORIENTATION [None]
